FAERS Safety Report 8589963-0 (Version None)
Quarter: 2012Q3

REPORT INFORMATION
  Report Type: 
  Country: None (occurrence: None)
  Receive Date: 20120813
  Receipt Date: 20120112
  Transmission Date: 20120928
  Serious: Yes (Other)
  Sender: FDA-Public Use
  Company Number: US-ROCHE-1099258

PATIENT
  Age: 55 Year
  Sex: Male

DRUGS (10)
  1. LIDOCAINE [Concomitant]
  2. XANAX [Concomitant]
     Dosage: DOSE: 0.25
  3. NITROGLYCERIN [Concomitant]
  4. METOPROLOL [Concomitant]
     Route: 048
  5. ASPIRIN [Concomitant]
  6. ASPIRIN [Concomitant]
  7. ACETAMINOPHEN [Concomitant]
     Dosage: 325-650 MG
  8. ACTIVASE [Suspect]
     Indication: ACUTE MYOCARDIAL INFARCTION
  9. HEPARIN [Concomitant]
  10. METOPROLOL [Concomitant]
     Dosage: 3 DOSES
     Route: 042

REACTIONS (3)
  - LEUKOCYTOSIS [None]
  - HYPERGLYCAEMIA [None]
  - BLOOD CREATINE PHOSPHOKINASE INCREASED [None]
